FAERS Safety Report 16842685 (Version 1)
Quarter: 2019Q3

REPORT INFORMATION
  Report Type: Spontaneous
  Country: US (occurrence: US)
  Receive Date: 20190918
  Receipt Date: 20190918
  Transmission Date: 20191005
  Serious: Yes (Hospitalization)
  Sender: FDA-Public Use
  Company Number: None

PATIENT
  Age: 75 Year
  Weight: 102 kg

DRUGS (2)
  1. WARFARIN [Suspect]
     Active Substance: WARFARIN
     Indication: PULMONARY EMBOLISM
     Route: 048
     Dates: start: 20190701
  2. ENOXAPARIN (GENERIC) [Suspect]
     Active Substance: ENOXAPARIN
     Route: 058
     Dates: start: 20190701, end: 20190716

REACTIONS (1)
  - Upper gastrointestinal haemorrhage [None]

NARRATIVE: CASE EVENT DATE: 20190716
